FAERS Safety Report 9012101 (Version 2)
Quarter: 2013Q2

REPORT INFORMATION
  Report Type: Spontaneous
  Country: US (occurrence: None)
  Receive Date: 20120518
  Receipt Date: 20120820
  Transmission Date: 20140414
  Serious: Yes (Other)
  Sender: FDA-Public Use
  Company Number: 1000028917

PATIENT
  Age: 44 Year
  Sex: Female

DRUGS (9)
  1. VIIBRYD (VILADOZOONE HYDROCHLORIDE) (10MILLIGRAM, TABLETS) [Suspect]
     Indication: DEPRESSION
     Dosage: 10 MG (10 MG, 1 IN 1 D) , ORAL
     Route: 048
     Dates: start: 20111213, end: 20111219
  2. VIIBRYD (VILADOZOONE HYDROCHLORIDE) (10MILLIGRAM, TABLETS) [Suspect]
     Indication: FIBROMYALGIA
     Dosage: 10 MG (10 MG, 1 IN 1 D) , ORAL
     Route: 048
     Dates: start: 20111213, end: 20111219
  3. VIBRYD (VILAZODONE) [Suspect]
     Indication: DEPRESSION
     Dosage: 1 IN 1 D
     Route: 048
     Dates: start: 20111227, end: 20120103
  4. ZOLPIDEM [Concomitant]
  5. TOPIRAMATE [Concomitant]
  6. LEVOTHYROXINE (LEVOTHYROXINE SODIUM) [Concomitant]
  7. CELEBREX [Concomitant]
  8. FLEXERIL (CYCLOBENZAPRINE) [Concomitant]
  9. PROAIR HFA (SALBUTAMOL SULFATE) [Concomitant]

REACTIONS (1)
  - Serotonin syndrome [None]
